FAERS Safety Report 11821315 (Version 4)
Quarter: 2016Q1

REPORT INFORMATION
  Report Type: Spontaneous
  Country: US (occurrence: US)
  Receive Date: 20151210
  Receipt Date: 20160329
  Transmission Date: 20160525
  Serious: Yes (Hospitalization, Other)
  Sender: FDA-Public Use
  Company Number: US-JNJFOC-20150705241

PATIENT
  Age: 84 Year
  Sex: Male

DRUGS (13)
  1. FELODIPINE. [Concomitant]
     Active Substance: FELODIPINE
  2. TAMSULOSINE [Concomitant]
     Active Substance: TAMSULOSIN HYDROCHLORIDE
  3. BETAMETHASONE. [Concomitant]
     Active Substance: BETAMETHASONE
  4. MORNIFLUMATE [Concomitant]
     Active Substance: MORNIFLUMATE
  5. MUPIROCIN. [Concomitant]
     Active Substance: MUPIROCIN
  6. ATENOLOL. [Concomitant]
     Active Substance: ATENOLOL
  7. PRILOSEC [Concomitant]
     Active Substance: OMEPRAZOLE MAGNESIUM
  8. LISINOPRIL. [Concomitant]
     Active Substance: LISINOPRIL
  9. ASPIRIN. [Concomitant]
     Active Substance: ASPIRIN
  10. IMBRUVICA [Suspect]
     Active Substance: IBRUTINIB
     Indication: CHRONIC LYMPHOCYTIC LEUKAEMIA
     Route: 048
     Dates: start: 20131231
  11. HYDROCODONE [Concomitant]
     Active Substance: HYDROCODONE
  12. CLOTRIMAZOLE. [Concomitant]
     Active Substance: CLOTRIMAZOLE
  13. HYDROCODONE BITARTRATE W/PARACETAMOL [Concomitant]
     Active Substance: ACETAMINOPHEN\HYDROCODONE BITARTRATE

REACTIONS (19)
  - Myalgia [Unknown]
  - Sleep apnoea syndrome [Unknown]
  - Contusion [Unknown]
  - Hernia [Unknown]
  - Rash [Unknown]
  - Dizziness [Unknown]
  - Erythema [Unknown]
  - Off label use [Not Recovered/Not Resolved]
  - Gait disturbance [Not Recovered/Not Resolved]
  - Skin discolouration [Unknown]
  - Arthralgia [Unknown]
  - Joint swelling [Unknown]
  - Skin cancer [Unknown]
  - Muscular weakness [Not Recovered/Not Resolved]
  - Productive cough [Unknown]
  - Pollakiuria [Unknown]
  - Pneumonia [Recovered/Resolved]
  - Inappropriate schedule of drug administration [Not Recovered/Not Resolved]
  - Oedema peripheral [Unknown]

NARRATIVE: CASE EVENT DATE: 201401
